FAERS Safety Report 5089798-X (Version None)
Quarter: 2006Q3

REPORT INFORMATION
  Report Type: 
  Country: None (occurrence: None)
  Receive Date: 20060828
  Receipt Date: 20060817
  Transmission Date: 20061208
  Serious: Yes (Other)
  Sender: FDA-Public Use
  Company Number: PHNU2006DE02827

PATIENT
  Age: 29 Year
  Sex: Male

DRUGS (2)
  1. GLIANIMON [Concomitant]
     Indication: SCHIZOPHRENIA
     Dates: end: 20060801
  2. LEPONEX [Suspect]
     Indication: SCHIZOPHRENIA
     Dosage: UP TO 200 MG/DAY
     Route: 048
     Dates: start: 20060701

REACTIONS (6)
  - ABDOMINAL RIGIDITY [None]
  - DIARRHOEA [None]
  - EOSINOPHILIA [None]
  - LEUKOCYTOSIS [None]
  - POLYDIPSIA PSYCHOGENIC [None]
  - POLYURIA [None]
